FAERS Safety Report 21352071 (Version 1)
Quarter: 2022Q3

REPORT INFORMATION
  Report Type: Spontaneous
  Country: US (occurrence: None)
  Receive Date: 20220920
  Receipt Date: 20220920
  Transmission Date: 20221027
  Serious: No
  Sender: FDA-Public Use
  Company Number: 2022A311938

PATIENT
  Sex: Female
  Weight: 111.6 kg

DRUGS (2)
  1. LOKELMA [Suspect]
     Active Substance: SODIUM ZIRCONIUM CYCLOSILICATE
     Indication: Blood potassium increased
     Route: 048
     Dates: start: 202201
  2. LOKELMA [Concomitant]
     Active Substance: SODIUM ZIRCONIUM CYCLOSILICATE
     Indication: Blood potassium increased
     Route: 048
     Dates: start: 202012

REACTIONS (4)
  - Rectal haemorrhage [Unknown]
  - Constipation [Unknown]
  - Product dose omission issue [Not Recovered/Not Resolved]
  - Product packaging quantity issue [Unknown]
